FAERS Safety Report 17561233 (Version 1)
Quarter: 2020Q1

REPORT INFORMATION
  Report Type: Spontaneous
  Country: US (occurrence: US)
  Receive Date: 20200312
  Receipt Date: 20200312
  Transmission Date: 20200409
  Serious: No
  Sender: FDA-Public Use
  Company Number: None

PATIENT
  Age: 44 Year
  Sex: Male
  Weight: 144 kg

DRUGS (1)
  1. VARENICLINE (VARENICLINE TAB STARTER PACK, 53) [Suspect]
     Active Substance: VARENICLINE
     Indication: SMOKING CESSATION THERAPY
     Route: 048
     Dates: start: 20200130, end: 20200220

REACTIONS (3)
  - Agitation [None]
  - Aggression [None]
  - Mood swings [None]

NARRATIVE: CASE EVENT DATE: 20200220
